FAERS Safety Report 4683310-2 (Version None)
Quarter: 2005Q2

REPORT INFORMATION
  Report Type: 
  Country: None (occurrence: None)
  Receive Date: 20050602
  Receipt Date: 20050222
  Transmission Date: 20051028
  Serious: No
  Sender: FDA-Public Use
  Company Number: 200510306BWH

PATIENT
  Age: 63 Year
  Sex: Male

DRUGS (2)
  1. LEVITRA [Suspect]
  2. LITHIUM [Concomitant]

REACTIONS (1)
  - HYPERTONIA [None]
